FAERS Safety Report 7294103-4 (Version None)
Quarter: 2011Q1

REPORT INFORMATION
  Report Type: 
  Country: None (occurrence: None)
  Receive Date: 20110215
  Receipt Date: 20110209
  Transmission Date: 20110831
  Serious: Yes (Hospitalization, Other)
  Sender: FDA-Public Use
  Company Number: SE-PFIZER INC-2011028841

PATIENT
  Age: 17 Year
  Sex: Female

DRUGS (6)
  1. MIRTAZAPINE [Concomitant]
  2. XANOR [Concomitant]
  3. ZELDOX [Suspect]
     Indication: DEPRESSION
     Dosage: 40 MG, UNK
     Dates: start: 20081104, end: 20100823
  4. DIAZEPAM [Concomitant]
  5. IMOVANE [Concomitant]
  6. CITALOPRAM [Concomitant]

REACTIONS (3)
  - DRUG ABUSE [None]
  - DETOXIFICATION [None]
  - TARDIVE DYSKINESIA [None]
